FAERS Safety Report 15367933 (Version 4)
Quarter: 2019Q1

REPORT INFORMATION
  Report Type: Spontaneous
  Country: FR (occurrence: FR)
  Receive Date: 20180910
  Receipt Date: 20190321
  Transmission Date: 20190417
  Serious: Yes (Death, Hospitalization, Other)
  Sender: FDA-Public Use
  Company Number: PHHY2018FR086861

PATIENT
  Age: 76 Year
  Sex: Female

DRUGS (3)
  1. CLOBETASOL [Suspect]
     Active Substance: CLOBETASOL
     Indication: PEMPHIGOID
     Dosage: TAPERED AT TIMES TO 10 G/DAY30 G, QD
     Route: 061
  2. MYCOPHENOLATE MOFETIL. [Suspect]
     Active Substance: MYCOPHENOLATE MOFETIL
     Indication: PEMPHIGOID
     Dosage: 2 G, QD (DAILY STARTED ON MONTH 08)
     Route: 065
  3. CLOBETASOL [Suspect]
     Active Substance: CLOBETASOL
     Dosage: 10 G, QD, TAPERED AT TIMES TO 10 G/DAY
     Route: 061

REACTIONS (11)
  - Beta haemolytic streptococcal infection [Unknown]
  - Necrotising fasciitis [Fatal]
  - Septic shock [Fatal]
  - White blood cell count increased [Unknown]
  - Diabetes mellitus [Fatal]
  - C-reactive protein increased [Unknown]
  - Neutrophil count increased [Unknown]
  - Staphylococcal infection [Fatal]
  - Pemphigoid [Unknown]
  - Off label use [Unknown]
  - Rebound effect [Unknown]
